FAERS Safety Report 6609111-3 (Version None)
Quarter: 2010Q1

REPORT INFORMATION
  Report Type: 
  Country: None (occurrence: None)
  Receive Date: 20100212
  Receipt Date: 20100126
  Transmission Date: 20100710
  Serious: No
  Sender: FDA-Public Use
  Company Number: US-144915

PATIENT

DRUGS (1)
  1. WINRHO SDF [Suspect]
     Indication: IDIOPATHIC THROMBOCYTOPENIC PURPURA
     Dosage: 75 UG/KG, TOTAL; INTRAVENOUS (NOT OTHERWISE SPECIFIED)

REACTIONS (7)
  - ANAEMIA [None]
  - CHILLS [None]
  - HAEMOGLOBINURIA [None]
  - HEADACHE [None]
  - INTRAVASCULAR HAEMOLYSIS [None]
  - PYREXIA [None]
  - VOMITING [None]
